FAERS Safety Report 13496868 (Version 15)
Quarter: 2021Q4

REPORT INFORMATION
  Report Type: Report from Study
  Country: PA (occurrence: PA)
  Receive Date: 20170428
  Receipt Date: 20211023
  Transmission Date: 20220303
  Serious: Yes (Other)
  Sender: FDA-Public Use
  Company Number: PHHY2017PA062641

PATIENT
  Age: 19 Year
  Sex: Female
  Weight: 54 kg

DRUGS (4)
  1. GILENYA [Suspect]
     Active Substance: FINGOLIMOD HYDROCHLORIDE
     Indication: Multiple sclerosis
     Dosage: 0.5 MG, QD
     Route: 048
     Dates: start: 20160128
  2. GILENYA [Suspect]
     Active Substance: FINGOLIMOD HYDROCHLORIDE
     Dosage: 0.5 MG, QD
     Route: 048
     Dates: start: 20160628
  3. GILENYA [Suspect]
     Active Substance: FINGOLIMOD HYDROCHLORIDE
     Dosage: 0.5 MG, UNK
     Route: 065
     Dates: start: 20160704
  4. GILENYA [Suspect]
     Active Substance: FINGOLIMOD HYDROCHLORIDE
     Dosage: UNK
     Route: 065

REACTIONS (38)
  - Haemoglobin decreased [Unknown]
  - Intermenstrual bleeding [Unknown]
  - Depression [Not Recovered/Not Resolved]
  - Hypoaesthesia [Not Recovered/Not Resolved]
  - Somnolence [Not Recovered/Not Resolved]
  - Mood altered [Not Recovered/Not Resolved]
  - Balance disorder [Not Recovered/Not Resolved]
  - Cervical dysplasia [Not Recovered/Not Resolved]
  - Headache [Not Recovered/Not Resolved]
  - Multiple sclerosis relapse [Not Recovered/Not Resolved]
  - Asthenia [Not Recovered/Not Resolved]
  - Dizziness [Unknown]
  - Fatigue [Not Recovered/Not Resolved]
  - Myalgia [Not Recovered/Not Resolved]
  - Facial paralysis [Recovered/Resolved]
  - Facial paralysis [Unknown]
  - Eyelid ptosis [Unknown]
  - Cervical discharge [Unknown]
  - Muscular weakness [Unknown]
  - Central nervous system lesion [Not Recovered/Not Resolved]
  - White matter lesion [Not Recovered/Not Resolved]
  - Neuralgia [Not Recovered/Not Resolved]
  - Vertigo [Not Recovered/Not Resolved]
  - Cerebral atrophy [Unknown]
  - Product dispensing error [Unknown]
  - Heavy menstrual bleeding [Unknown]
  - Decreased immune responsiveness [Unknown]
  - Feeling hot [Unknown]
  - Pain in extremity [Not Recovered/Not Resolved]
  - Rhinitis allergic [Unknown]
  - Spinal pain [Unknown]
  - Red blood cell count decreased [Unknown]
  - Nasopharyngitis [Unknown]
  - White blood cell count decreased [Unknown]
  - Lymphadenopathy [Unknown]
  - Rhinorrhoea [Unknown]
  - Dysphagia [Unknown]
  - Back pain [Not Recovered/Not Resolved]

NARRATIVE: CASE EVENT DATE: 20201127
